FAERS Safety Report 11945141 (Version 2)
Quarter: 2016Q1

REPORT INFORMATION
  Report Type: Spontaneous
  Country: DK (occurrence: DK)
  Receive Date: 20160125
  Receipt Date: 20160129
  Transmission Date: 20160526
  Serious: Yes (Hospitalization)
  Sender: FDA-Public Use
  Company Number: DK-PFIZER INC-2016028752

PATIENT
  Age: 15 Year
  Sex: Female

DRUGS (1)
  1. LOETTE-28 [Suspect]
     Active Substance: ETHINYL ESTRADIOL\LEVONORGESTREL
     Indication: DYSMENORRHOEA
     Dosage: 1 DF (1 TABLET STRENGHT: 0,10+0,02 MG), 1X/DAY
     Route: 048
     Dates: start: 20151225, end: 20160104

REACTIONS (3)
  - Product use issue [Unknown]
  - Gastritis [Recovered/Resolved]
  - Abdominal pain upper [Recovered/Resolved]

NARRATIVE: CASE EVENT DATE: 20151225
